FAERS Safety Report 9463081 (Version 1)
Quarter: 2013Q3

REPORT INFORMATION
  Report Type: Spontaneous
  Country: US (occurrence: US)
  Receive Date: 20130818
  Receipt Date: 20130818
  Transmission Date: 20140515
  Serious: Yes (Other)
  Sender: FDA-Public Use
  Company Number: US-ROXANE LABORATORIES, INC.-2013-RO-01340RO

PATIENT
  Age: 45 Year
  Sex: Female

DRUGS (17)
  1. OXYCODONE [Suspect]
     Indication: PAIN
  2. OXYCODONE CR [Suspect]
     Indication: PAIN
     Dosage: 60 MG
  3. LEVOTHYROXINE [Suspect]
     Indication: HYPOTHYROIDISM
     Dosage: 300 MCG
  4. ERGOCALCIFEROL [Suspect]
  5. AMITRIPTYLINE [Suspect]
     Dosage: 75 MG
  6. PRAMIPEXOLE [Suspect]
     Dosage: 0.5 MG
  7. PLURONIC LECITHIN ORANOGEL [Suspect]
  8. DOCUSATE [Concomitant]
  9. SENNA [Concomitant]
  10. POLYETHYLENE GLYCOL [Concomitant]
  11. ESOMEPRAZOLE [Concomitant]
  12. CHLORTHALIDONE [Concomitant]
  13. LOSARTAN [Concomitant]
  14. ESZOPICLONE [Concomitant]
  15. MONTELUKAST [Concomitant]
  16. FLUTICASONE PROPIONATE [Concomitant]
  17. ALBUTEROL [Concomitant]

REACTIONS (2)
  - Inadequate analgesia [Unknown]
  - Pain [Unknown]
